FAERS Safety Report 7325629-2 (Version None)
Quarter: 2011Q1

REPORT INFORMATION
  Report Type: 
  Country: None (occurrence: None)
  Receive Date: 20110302
  Receipt Date: 20110224
  Transmission Date: 20110831
  Serious: Yes (Hospitalization, Other)
  Sender: FDA-Public Use
  Company Number: BR-PFIZER INC-2011040267

PATIENT
  Age: 27 Year
  Sex: Female
  Weight: 63 kg

DRUGS (1)
  1. DEPO-PROVERA [Suspect]
     Indication: CONTRACEPTION
     Dosage: 150 MG, EVERY 3 MONTHS
     Route: 030
     Dates: start: 20101120, end: 20101120

REACTIONS (5)
  - ROAD TRAFFIC ACCIDENT [None]
  - EYE INJURY [None]
  - URINARY TRACT INFECTION [None]
  - LOWER LIMB FRACTURE [None]
  - PAIN [None]
